FAERS Safety Report 7015552-5 (Version None)
Quarter: 2010Q3

REPORT INFORMATION
  Report Type: 
  Country: None (occurrence: None)
  Receive Date: 20100927
  Receipt Date: 20100917
  Transmission Date: 20110219
  Serious: Yes (Hospitalization)
  Sender: FDA-Public Use
  Company Number: US-ABBOTT-10P-163-0671318-00

PATIENT
  Sex: Female
  Weight: 63.56 kg

DRUGS (7)
  1. HUMIRA [Suspect]
     Indication: CROHN'S DISEASE
     Dates: start: 20100801
  2. LIALDA [Concomitant]
     Indication: CROHN'S DISEASE
  3. IMODIUM [Concomitant]
     Indication: CROHN'S DISEASE
  4. ASCORBIC ACID [Concomitant]
     Indication: VITAMIN SUPPLEMENTATION
  5. FERROUS SULFATE [Concomitant]
     Indication: PRODUCT USED FOR UNKNOWN INDICATION
  6. FLAGYL [Concomitant]
     Indication: CROHN'S DISEASE
  7. PREDNISONE [Concomitant]
     Indication: CROHN'S DISEASE

REACTIONS (6)
  - ABDOMINAL PAIN UPPER [None]
  - DEVICE MALFUNCTION [None]
  - GASTRIC ULCER [None]
  - GASTRITIS [None]
  - PYREXIA [None]
  - VOMITING [None]
